FAERS Safety Report 9532214 (Version 1)
Quarter: 2013Q3

REPORT INFORMATION
  Report Type: Spontaneous
  Country: AR (occurrence: AR)
  Receive Date: 20130918
  Receipt Date: 20130918
  Transmission Date: 20140515
  Serious: Yes (Other)
  Sender: FDA-Public Use
  Company Number: AR-ABBVIE-13P-007-1148120-00

PATIENT
  Age: 43 Year
  Sex: Female

DRUGS (4)
  1. HUMIRA [Suspect]
     Indication: RHEUMATOID ARTHRITIS
     Route: 058
     Dates: start: 20110301, end: 201105
  2. HUMIRA [Suspect]
     Route: 058
     Dates: start: 201110, end: 201201
  3. HUMIRA [Suspect]
     Route: 058
  4. ARTRAIT [Concomitant]
     Indication: PRODUCT USED FOR UNKNOWN INDICATION

REACTIONS (1)
  - Bone erosion [Recovered/Resolved with Sequelae]
